FAERS Safety Report 8953097 (Version 1)
Quarter: 2012Q4

REPORT INFORMATION
  Report Type: 
  Country: US (occurrence: US)
  Receive Date: 20121205
  Receipt Date: 20121205
  Transmission Date: 20130627
  Serious: No
  Sender: FDA-Public Use
  Company Number: US-MYLANLABS-2012S1020595

PATIENT
  Sex: Male

DRUGS (1)
  1. DOXYCYCLINE HYCLATE DELAYED-RELEASE TABLETS USP [Suspect]
     Indication: ACNE
     Dates: start: 2012, end: 2012

REACTIONS (2)
  - Drug effect decreased [Recovered/Resolved]
  - Acne [Recovered/Resolved]
